FAERS Safety Report 19004845 (Version 1)
Quarter: 2021Q1

REPORT INFORMATION
  Report Type: Report from Study
  Country: AU (occurrence: AU)
  Receive Date: 20210312
  Receipt Date: 20210312
  Transmission Date: 20210420
  Serious: Yes (Other)
  Sender: FDA-Public Use
  Company Number: AU-ROCHE-2778938

PATIENT
  Age: 62 Year
  Sex: Female

DRUGS (27)
  1. BIOTENE MOUTHWASH [Concomitant]
     Active Substance: CETYLPYRIDINIUM CHLORIDE
     Indication: DRY MOUTH
     Dates: start: 20191216, end: 20200716
  2. MENTHOL. [Concomitant]
     Active Substance: MENTHOL
     Dosage: 1?3 SPRAYS EACH NOSTRIL,
     Dates: start: 202001
  3. FLUCLOXACILINA [Concomitant]
     Route: 048
     Dates: start: 20210203, end: 20210210
  4. FUCIDIN [Concomitant]
     Active Substance: FUSIDATE SODIUM
     Indication: INFECTION
     Route: 061
     Dates: start: 20210125, end: 20210204
  5. VENETOCLAX. [Suspect]
     Active Substance: VENETOCLAX
     Indication: B-CELL LYMPHOMA
     Dosage: DURING DOSE ESCALATION, THE DOSES FOR VENETOCLAX CAN BE 400MG DAILY DAYS 1?10, 800MG DAILY DAYS 1?10
     Route: 048
     Dates: start: 20191010
  6. LORATADINE. [Concomitant]
     Active Substance: LORATADINE
     Indication: PRURITUS
     Route: 048
     Dates: start: 20191124
  7. LORATADINE. [Concomitant]
     Active Substance: LORATADINE
     Indication: CONJUNCTIVITIS
     Dates: start: 20191124, end: 20191124
  8. PARACETAMOL [Concomitant]
     Active Substance: ACETAMINOPHEN
     Indication: PAIN
     Route: 048
     Dates: start: 20190912, end: 20190912
  9. PANADOL [Concomitant]
     Active Substance: ACETAMINOPHEN
     Indication: HEADACHE
     Route: 048
     Dates: start: 20201024
  10. FEXOFENADINE [Concomitant]
     Active Substance: FEXOFENADINE HYDROCHLORIDE
     Indication: SEASONAL ALLERGY
     Dosage: 60 MG 120 MG
     Route: 048
     Dates: start: 20201031
  11. FLUCLOXACILINA [Concomitant]
     Indication: INFECTION
     Route: 048
     Dates: start: 20210125, end: 20210201
  12. OBINUTUZUMAB. [Suspect]
     Active Substance: OBINUTUZUMAB
     Indication: B-CELL LYMPHOMA
     Dosage: MOST RECENT DOSE: 31/DEC/2020?1000 MG?A FLAT DOSE OF 1000MG IV WILL BE GIVEN EVERY CYCLE DURING INDU
     Route: 042
     Dates: start: 20191010
  13. MENTHOL. [Concomitant]
     Active Substance: MENTHOL
     Dosage: 1?3 SPRAYS EACH NOSTRIL,
     Dates: start: 202001
  14. CLARITYNE?D [Concomitant]
     Active Substance: LORATADINE\PSEUDOEPHEDRINE SULFATE
     Dosage: 5 MG?120 MG
     Route: 048
     Dates: start: 20201028
  15. LENALIDOMIDE [Suspect]
     Active Substance: LENALIDOMIDE
     Indication: B-CELL LYMPHOMA
     Dosage: DURING DOSE ESCALATION, THE DOSES OF LENALIDOMIDE CAN BE 15MG FOR DAYS 1?21 OR 20MG FOR DAYS 1?21. 6
     Route: 048
     Dates: start: 20191107
  16. PARACETAMOL [Concomitant]
     Active Substance: ACETAMINOPHEN
     Indication: CONJUNCTIVITIS
  17. METOCLOPRAMIDE. [Concomitant]
     Active Substance: METOCLOPRAMIDE
     Indication: NAUSEA
     Route: 048
  18. EUCALYPTUS [Concomitant]
     Active Substance: EUCALYPTUS GLOBULUS POLLEN\EUCALYPTUS GUM
     Dosage: ESSENTIAL OIL,
     Route: 061
     Dates: start: 20200120, end: 202010
  19. DEXAMETHASONE. [Concomitant]
     Active Substance: DEXAMETHASONE
     Indication: PREMEDICATION
     Route: 048
     Dates: start: 20191010, end: 20191107
  20. PARACETAMOL [Concomitant]
     Active Substance: ACETAMINOPHEN
     Indication: PREMEDICATION
     Dates: start: 20191122, end: 20191203
  21. LORATADINE. [Concomitant]
     Active Substance: LORATADINE
     Indication: PREMEDICATION
     Route: 048
     Dates: start: 20191010
  22. SYMBICORT [Concomitant]
     Active Substance: BUDESONIDE\FORMOTEROL FUMARATE DIHYDRATE
     Indication: COUGH
     Dosage: 200/6MCG 2 PUFFS
     Dates: start: 20200906
  23. PROMETHAZINE [Concomitant]
     Active Substance: PROMETHAZINE HYDROCHLORIDE
     Indication: PRURITUS
     Route: 048
     Dates: start: 20200916
  24. PARACETAMOL [Concomitant]
     Active Substance: ACETAMINOPHEN
     Indication: HEADACHE
     Route: 048
     Dates: start: 20191010
  25. MAGNESIUM [Concomitant]
     Active Substance: MAGNESIUM
     Indication: PLANTAR FASCIITIS
     Dosage: 300MG/G SMEAR BOTH FEET DAILY
     Route: 061
     Dates: start: 20191110
  26. BIOTENE MOUTHWASH [Concomitant]
     Active Substance: CETYLPYRIDINIUM CHLORIDE
     Indication: STOMATITIS
     Dates: start: 20200208
  27. EUCALYPTUS [Concomitant]
     Active Substance: EUCALYPTUS GLOBULUS POLLEN\EUCALYPTUS GUM
     Dosage: 1?3 SPRAYS EACH NOSTRIL
     Dates: start: 202001

REACTIONS (1)
  - Squamous cell carcinoma [Recovering/Resolving]

NARRATIVE: CASE EVENT DATE: 20210121
